FAERS Safety Report 12937412 (Version 2)
Quarter: 2017Q1

REPORT INFORMATION
  Report Type: Spontaneous
  Country: US (occurrence: US)
  Receive Date: 20161114
  Receipt Date: 20170116
  Transmission Date: 20170428
  Serious: No
  Sender: FDA-Public Use
  Company Number: US-009507513-1610USA013470

PATIENT
  Age: 34 Year
  Sex: Female
  Weight: 67.03 kg

DRUGS (1)
  1. NEXPLANON [Suspect]
     Active Substance: ETONOGESTREL
     Dosage: UNK, ONCE
     Route: 059
     Dates: start: 20160607

REACTIONS (6)
  - Migration of implanted drug [Not Recovered/Not Resolved]
  - Depression [Unknown]
  - Libido decreased [Unknown]
  - Complication associated with device [Recovered/Resolved]
  - Hypersensitivity [Unknown]
  - Dizziness [Unknown]

NARRATIVE: CASE EVENT DATE: 2016
